FAERS Safety Report 20518505 (Version 1)
Quarter: 2022Q1

REPORT INFORMATION
  Report Type: Spontaneous
  Country: US (occurrence: None)
  Receive Date: 20220224
  Receipt Date: 20220224
  Transmission Date: 20220423
  Serious: Yes (Hospitalization)
  Sender: FDA-Public Use
  Company Number: None

PATIENT
  Age: 64 Year
  Sex: Female

DRUGS (15)
  1. OPSUMIT [Suspect]
     Active Substance: MACITENTAN
     Indication: Pulmonary arterial hypertension
     Dosage: FREQUENCY : DAILY;?
     Route: 048
     Dates: start: 20151028
  2. TADALAFIL [Concomitant]
     Active Substance: TADALAFIL
  3. UPTRAVI [Concomitant]
     Active Substance: SELEXIPAG
  4. AMIODARONE [Concomitant]
     Active Substance: AMIODARONE
  5. ALBUTEROL SULFATE [Concomitant]
     Active Substance: ALBUTEROL SULFATE
  6. SPIRIVA RESPIMAT [Concomitant]
     Active Substance: TIOTROPIUM BROMIDE
  7. GABAPENTIN [Concomitant]
     Active Substance: GABAPENTIN
  8. ALBUTEROL [Concomitant]
     Active Substance: ALBUTEROL
  9. LASIX [Concomitant]
     Active Substance: FUROSEMIDE
  10. K-TAB [Concomitant]
     Active Substance: POTASSIUM CHLORIDE
  11. WARFARIN [Concomitant]
     Active Substance: WARFARIN
  12. VOLTAREN TOP GEL [Concomitant]
  13. WIXELA INHUB [Concomitant]
     Active Substance: FLUTICASONE PROPIONATE\SALMETEROL XINAFOATE
  14. ACETAMINOPHEN [Concomitant]
     Active Substance: ACETAMINOPHEN
  15. VITAMIN D3 [Concomitant]
     Active Substance: CHOLECALCIFEROL

REACTIONS (4)
  - Respiratory failure [None]
  - Atrial flutter [None]
  - Cardiac failure congestive [None]
  - Pulmonary amyloidosis [None]

NARRATIVE: CASE EVENT DATE: 20220213
